FAERS Safety Report 18318797 (Version 1)
Quarter: 2020Q3

REPORT INFORMATION
  Report Type: Report from Study
  Country: US (occurrence: US)
  Receive Date: 20200928
  Receipt Date: 20200928
  Transmission Date: 20201103
  Serious: Yes (Death)
  Sender: FDA-Public Use
  Company Number: US-PFIZER INC-0003455102PHAMED

PATIENT

DRUGS (6)
  1. BENADRYL [Concomitant]
     Active Substance: DIPHENHYDRAMINE HYDROCHLORIDE
     Indication: ANTIEMETIC SUPPORTIVE CARE
     Dosage: 25 MG
     Route: 042
  2. CYTARABINE. [Suspect]
     Active Substance: CYTARABINE
     Indication: LYMPHOMA
     Dosage: 2 G/M2, CYCLIC(ON DAY 2, IN A 3?HOUR INFUSION DOSE AND REPEATED AFTER 12 HOURS)
     Route: 042
  3. METOCLOPRAMIDE. [Concomitant]
     Active Substance: METOCLOPRAMIDE
     Indication: ANTIEMETIC SUPPORTIVE CARE
     Dosage: 1 MG/KG
     Route: 042
  4. CISPLATIN. [Suspect]
     Active Substance: CISPLATIN
     Indication: LYMPHOMA
     Dosage: 100 MG/M2, CYCLIC (ON DAY 1, INFUSED CONTINUOUSLY OVER 24 HOURS)
     Route: 042
  5. DEXAMETHASONE. [Suspect]
     Active Substance: DEXAMETHASONE
     Indication: LYMPHOMA
     Dosage: 40 MG, CYCLIC(15 MIN, DAILY, ON DAYS 1?4, FOR 4 CONSECUTIVE DAYS)
     Route: 042
  6. MANNITOL. [Concomitant]
     Active Substance: MANNITOL
     Indication: FLUID REPLACEMENT
     Dosage: 50 G/L WAS GIVEN AT 250 CM3/H OVER A PERIOD OF 36 HOURS

REACTIONS (2)
  - Multiple organ dysfunction syndrome [Fatal]
  - Tumour lysis syndrome [Fatal]
